FAERS Safety Report 15470808 (Version 3)
Quarter: 2019Q1

REPORT INFORMATION
  Report Type: Spontaneous
  Country: PT (occurrence: ES)
  Receive Date: 20181005
  Receipt Date: 20190125
  Transmission Date: 20190417
  Serious: Yes (Other)
  Sender: FDA-Public Use
  Company Number: PT-SUNOVION-2018SUN003849

PATIENT

DRUGS (7)
  1. ZEBINIX [Suspect]
     Active Substance: ESLICARBAZEPINE ACETATE
     Indication: PARTIAL SEIZURES
     Dosage: 1600 MG, DAILY
     Route: 048
     Dates: start: 20150409
  2. ZONEGRAN [Concomitant]
     Active Substance: ZONISAMIDE
     Dosage: 500 MG, DAILY
  3. MYSOLINE [Concomitant]
     Active Substance: PRIMIDONE
     Dosage: IN REDUCTION FOR WITHDRAWAL
  4. MYSOLINE [Concomitant]
     Active Substance: PRIMIDONE
     Dosage: IN REDUCTION FOR WITHDRAWAL
  5. MYSOLINE [Concomitant]
     Active Substance: PRIMIDONE
     Dosage: IN REDUCTION FOR WITHDRAWAL
  6. BRIVIACT [Concomitant]
     Active Substance: BRIVARACETAM
     Dosage: 75 MG/12 HOURS
  7. NOIAFREN [Concomitant]
     Active Substance: CLOBAZAM
     Dosage: 15 MG, DAILY

REACTIONS (3)
  - Myeloproliferative neoplasm [Recovered/Resolved]
  - Overdose [Not Recovered/Not Resolved]
  - Off label use [Not Recovered/Not Resolved]

NARRATIVE: CASE EVENT DATE: 20150409
